FAERS Safety Report 7700650-0 (Version None)
Quarter: 2011Q3

REPORT INFORMATION
  Report Type: 
  Country: None (occurrence: None)
  Receive Date: 20110822
  Receipt Date: 20110822
  Transmission Date: 20111222
  Serious: Yes (Other)
  Sender: FDA-Public Use
  Company Number: None

PATIENT
  Age: 53 Year
  Sex: Male
  Weight: 113.39 kg

DRUGS (1)
  1. CYMBALTA [Suspect]
     Indication: DEPRESSION
     Dosage: 60MG
     Route: 048
     Dates: start: 20091115, end: 20110820

REACTIONS (3)
  - CONDITION AGGRAVATED [None]
  - HAEMORRHOIDS [None]
  - CONSTIPATION [None]
